FAERS Safety Report 8435015-X (Version None)
Quarter: 2012Q2

REPORT INFORMATION
  Report Type: 
  Country: None (occurrence: None)
  Receive Date: 20120614
  Receipt Date: 20120608
  Transmission Date: 20120825
  Serious: No
  Sender: FDA-Public Use
  Company Number: US-PFIZER INC-2012102860

PATIENT
  Sex: Female
  Weight: 54.4 kg

DRUGS (10)
  1. METOCLOPRAMIDE [Concomitant]
     Indication: ABDOMINAL DISCOMFORT
     Dosage: UNK
  2. RANITIDINE [Concomitant]
     Indication: ABDOMINAL DISCOMFORT
     Dosage: UNK
  3. ADVAIR DISKUS 100/50 [Concomitant]
     Indication: ASTHMA
     Dosage: UNK
  4. METHADONE HCL [Suspect]
     Indication: PAIN
     Dosage: UNK
  5. ALBUTEROL [Concomitant]
     Indication: ASTHMA
     Dosage: UNK
  6. LOTENSIN HCT [Concomitant]
     Indication: HYPERTENSION
     Dosage: 20/25 MG, UNK
     Route: 048
  7. ACIPHEX [Concomitant]
     Indication: ABDOMINAL DISCOMFORT
     Dosage: UNK
     Route: 048
  8. CHANTIX [Suspect]
     Indication: SMOKING CESSATION THERAPY
     Dosage: 0.5 MG, 1X/DAY
     Route: 048
     Dates: end: 20110901
  9. HYDROCODONE [Suspect]
     Indication: PAIN
     Dosage: UNK
  10. CITALOPRAM [Concomitant]
     Indication: DEPRESSION
     Dosage: UNK

REACTIONS (6)
  - PROTEIN TOTAL DECREASED [None]
  - WEIGHT DECREASED [None]
  - ALLERGY TO CHEMICALS [None]
  - URTICARIA [None]
  - HYPERSENSITIVITY [None]
  - RASH [None]
